FAERS Safety Report 9071206 (Version 1)
Quarter: 2013Q1

REPORT INFORMATION
  Report Type: Spontaneous
  Country: JP (occurrence: JP)
  Receive Date: 20130129
  Receipt Date: 20130129
  Transmission Date: 20140127
  Serious: Yes (Death)
  Sender: FDA-Public Use
  Company Number: JP-ASTRAZENECA-2013SE05806

PATIENT
  Age: 25 Year
  Sex: Male

DRUGS (4)
  1. SEROQUEL [Suspect]
     Indication: SCHIZOPHRENIA, PARANOID TYPE
     Route: 048
  2. HALOPERIDOL [Concomitant]
     Route: 065
  3. LEVOMEPROMAZINE HYDROCHLORIDE [Concomitant]
  4. BIPERIDEN HYDROCHLORIDE [Concomitant]
     Route: 065

REACTIONS (2)
  - Completed suicide [Fatal]
  - Depression [Fatal]
